FAERS Safety Report 21935391 (Version 9)
Quarter: 2023Q2

REPORT INFORMATION
  Report Type: Report from Study
  Country: GB (occurrence: None)
  Receive Date: 20230201
  Receipt Date: 20230424
  Transmission Date: 20230722
  Serious: Yes (Hospitalization)
  Sender: FDA-Public Use
  Company Number: GB-ROCHE-3274014

PATIENT
  Age: 79 Year
  Sex: Female

DRUGS (29)
  1. ATEZOLIZUMAB [Suspect]
     Active Substance: ATEZOLIZUMAB
     Indication: Non-small cell lung cancer metastatic
     Dosage: ON 29/DEC/2022, MOST RECENT DOSE 1200 MG OF ATEZOLIZUMAB PRIOR TO AE AND SAE
     Route: 042
     Dates: start: 20221229
  2. BEVACIZUMAB [Suspect]
     Active Substance: BEVACIZUMAB
     Indication: Non-small cell lung cancer metastatic
     Dosage: ON 29/DEC/2022, MOST RECENT DOSE 1100 MG OF BEVACIZUMAB PRIOR TO AE AND SAE
     Route: 042
     Dates: start: 20221229
  3. APIXABAN [Concomitant]
     Active Substance: APIXABAN
     Indication: Atrial fibrillation
     Route: 048
     Dates: start: 20160323
  4. MINERAL OIL\PARAFFIN [Concomitant]
     Active Substance: MINERAL OIL\PARAFFIN
     Indication: Rash
     Dosage: 1 OTHER
     Route: 061
     Dates: start: 20180918
  5. LANSOPRAZOLE [Concomitant]
     Active Substance: LANSOPRAZOLE
     Indication: Dyspepsia
     Route: 048
     Dates: start: 20121130
  6. TRELEGY ELLIPTA [Concomitant]
     Active Substance: FLUTICASONE FUROATE\UMECLIDINIUM BROMIDE\VILANTEROL TRIFENATATE
     Indication: Chronic obstructive pulmonary disease
     Route: 048
     Dates: start: 20221109
  7. VERAPAMIL [Concomitant]
     Active Substance: VERAPAMIL HYDROCHLORIDE
     Indication: Musculoskeletal pain
     Route: 048
     Dates: start: 20160503
  8. AMITRIPTYLINE [Concomitant]
     Active Substance: AMITRIPTYLINE
     Indication: Musculoskeletal pain
     Route: 048
     Dates: start: 20221006
  9. OXYCODONE HYDROCHLORIDE [Concomitant]
     Active Substance: OXYCODONE HYDROCHLORIDE
     Indication: Musculoskeletal pain
     Route: 048
     Dates: start: 20221010, end: 20230127
  10. OXYCODONE HYDROCHLORIDE [Concomitant]
     Active Substance: OXYCODONE HYDROCHLORIDE
     Indication: Musculoskeletal pain
     Route: 048
     Dates: start: 20230104
  11. ACETAMINOPHEN [Concomitant]
     Active Substance: ACETAMINOPHEN
     Indication: Musculoskeletal pain
     Route: 048
     Dates: start: 20230110, end: 20230130
  12. ACETAMINOPHEN [Concomitant]
     Active Substance: ACETAMINOPHEN
     Indication: Constipation
     Route: 042
     Dates: start: 20230125, end: 20230130
  13. DEXAMETHASONE [Concomitant]
     Active Substance: DEXAMETHASONE
     Indication: Arthralgia
     Route: 048
     Dates: start: 20230110, end: 20230118
  14. DEXAMETHASONE [Concomitant]
     Active Substance: DEXAMETHASONE
     Indication: Oesophageal motility disorder
     Route: 042
     Dates: start: 20230131, end: 20230207
  15. AMOXICILLIN\CLAVULANATE POTASSIUM [Concomitant]
     Active Substance: AMOXICILLIN\CLAVULANATE POTASSIUM
     Indication: Infection
     Route: 048
     Dates: start: 20230110, end: 20230115
  16. SODIUM CHLORIDE [Concomitant]
     Active Substance: SODIUM CHLORIDE
     Indication: Constipation
     Route: 042
     Dates: start: 20230125, end: 20230126
  17. BISACODYL [Concomitant]
     Active Substance: BISACODYL
     Indication: Constipation
     Route: 048
     Dates: start: 20230125
  18. CALCIUM CHLORIDE\POTASSIUM CHLORIDE\SODIUM CHLORIDE\SODIUM LACTATE [Concomitant]
     Active Substance: CALCIUM CHLORIDE\POTASSIUM CHLORIDE\SODIUM CHLORIDE\SODIUM LACTATE
     Indication: Dehydration
     Route: 042
     Dates: start: 20230126, end: 20230127
  19. MAGNESIUM GLYCEROPHOSPHATE [Concomitant]
     Active Substance: MAGNESIUM GLYCEROPHOSPHATE
     Indication: Hypomagnesaemia
     Dosage: 4 OTHER
     Route: 048
     Dates: start: 20230130
  20. POTASSIUM CHLORIDE\SODIUM CHLORIDE [Concomitant]
     Active Substance: POTASSIUM CHLORIDE\SODIUM CHLORIDE
     Indication: Hypokalaemia
     Route: 042
     Dates: start: 20230127
  21. FOLIC ACID [Concomitant]
     Active Substance: FOLIC ACID
     Route: 048
     Dates: start: 20230125
  22. MINERAL OIL [Concomitant]
     Active Substance: MINERAL OIL
     Indication: Dry skin
     Route: 061
     Dates: start: 202301
  23. CYCLIZINE [Concomitant]
     Active Substance: CYCLIZINE
     Indication: Nausea
     Route: 042
     Dates: start: 20230130, end: 20230130
  24. CYCLIZINE [Concomitant]
     Active Substance: CYCLIZINE
     Route: 042
     Dates: start: 20230130, end: 20230203
  25. DOCUSATE [Concomitant]
     Active Substance: DOCUSATE
     Indication: Constipation
     Route: 048
     Dates: start: 20230127
  26. MINERAL OIL [Concomitant]
     Active Substance: MINERAL OIL
     Indication: Dry skin
     Route: 061
     Dates: start: 202301
  27. LEVOTHYROXINE [Concomitant]
     Active Substance: LEVOTHYROXINE
     Indication: Hypothyroidism
     Route: 048
     Dates: start: 20031008
  28. IBUPROFEN [Concomitant]
     Active Substance: IBUPROFEN
     Indication: Arthralgia
     Route: 048
  29. FLUCLOXACILLIN [Concomitant]
     Active Substance: FLUCLOXACILLIN
     Indication: Cellulitis
     Route: 048
     Dates: end: 20230411

REACTIONS (2)
  - Pneumonia aspiration [Recovered/Resolved]
  - Ileus paralytic [Recovered/Resolved]

NARRATIVE: CASE EVENT DATE: 20230125
